FAERS Safety Report 6412103-0 (Version None)
Quarter: 2009Q4

REPORT INFORMATION
  Report Type: 
  Country: None (occurrence: None)
  Receive Date: 20091023
  Receipt Date: 20091022
  Transmission Date: 20100525
  Serious: Yes (Other)
  Sender: FDA-Public Use
  Company Number: A0812638A

PATIENT
  Age: 42 Year
  Sex: Female

DRUGS (3)
  1. NICOTINE [Suspect]
     Route: 062
  2. NICORETTE [Suspect]
     Indication: SMOKING CESSATION THERAPY
     Route: 002
  3. CLOZARIL [Suspect]

REACTIONS (3)
  - DRUG INTERACTION [None]
  - OROPHARYNGEAL PAIN [None]
  - PSYCHOTIC DISORDER [None]
